FAERS Safety Report 7250095-5 (Version None)
Quarter: 2011Q1

REPORT INFORMATION
  Report Type: 
  Country: None (occurrence: None)
  Receive Date: 20110128
  Receipt Date: 20110110
  Transmission Date: 20110831
  Serious: Yes (Other)
  Sender: FDA-Public Use
  Company Number: US-BAYER-2011-005072

PATIENT
  Sex: Female

DRUGS (3)
  1. LEVOPRAID [Concomitant]
  2. BETASERON [Suspect]
     Dosage: BETAJECT 2 MIU, QOD
     Route: 058
     Dates: start: 20110110
  3. BETASERON [Suspect]
     Indication: RELAPSING-REMITTING MULTIPLE SCLEROSIS
     Dosage: UNK UNK, QOD
     Route: 058
     Dates: start: 20090320, end: 20091223

REACTIONS (8)
  - DYSARTHRIA [None]
  - FEELING HOT [None]
  - DIZZINESS [None]
  - EYE DISORDER [None]
  - LOSS OF CONSCIOUSNESS [None]
  - FEELING ABNORMAL [None]
  - COLD SWEAT [None]
  - FATIGUE [None]
